FAERS Safety Report 14935904 (Version 5)
Quarter: 2018Q4

REPORT INFORMATION
  Report Type: Spontaneous
  Country: JP (occurrence: JP)
  Receive Date: 20180524
  Receipt Date: 20181203
  Transmission Date: 20190204
  Serious: Yes (Life-Threatening, Hospitalization, Other)
  Sender: FDA-Public Use
  Company Number: JP-ABBVIE-18P-087-2362481-00

PATIENT
  Age: 85 Year
  Sex: Female
  Weight: 32.4 kg

DRUGS (4)
  1. MAVIRET [Suspect]
     Active Substance: GLECAPREVIR\PIBRENTASVIR
     Indication: HEPATITIS C
     Route: 048
     Dates: start: 20180412, end: 20180518
  2. URSODEOXYCHOLIC ACID [Concomitant]
     Active Substance: URSODIOL
     Indication: HEPATITIS C
     Route: 048
     Dates: end: 20180518
  3. OLMESARTAN MEDOXOMILO- AZELNIDIPINE MIXT [Concomitant]
     Indication: HYPERTENSION
     Route: 048
     Dates: end: 20180518
  4. CLOTIAZEPAM [Concomitant]
     Active Substance: CLOTIAZEPAM
     Indication: ANXIETY DISORDER
     Route: 048
     Dates: end: 20180518

REACTIONS (2)
  - Cerebral haemorrhage [Recovering/Resolving]
  - Cerebral amyloid angiopathy [Unknown]

NARRATIVE: CASE EVENT DATE: 20180518
